FAERS Safety Report 4976504-X (Version None)
Quarter: 2006Q2

REPORT INFORMATION
  Report Type: 
  Country: None (occurrence: None)
  Receive Date: 20060412
  Receipt Date: 20060331
  Transmission Date: 20061013
  Serious: Yes (Other)
  Sender: FDA-Public Use
  Company Number: 2006044551

PATIENT
  Age: 38 Year
  Sex: Female
  Weight: 51.7101 kg

DRUGS (4)
  1. SUDAFED 12 HOUR [Suspect]
     Indication: SINUS DISORDER
     Dosage: 2 TABLETS, ONCE, ORAL
     Route: 048
     Dates: start: 20060301, end: 20060301
  2. COSOPT [Concomitant]
  3. BRIMONIDINE TARTRATE [Concomitant]
  4. MULTIVITAMINS (ASCORBIC ACID, ERGOCALCIFEROL, FOLIC ACID, NICOTINAMIDE [Concomitant]

REACTIONS (2)
  - GLAUCOMA [None]
  - SINUS HEADACHE [None]
